FAERS Safety Report 19252070 (Version 1)
Quarter: 2021Q2

REPORT INFORMATION
  Report Type: Other
  Country: JP (occurrence: JP)
  Receive Date: 20210513
  Receipt Date: 20210513
  Transmission Date: 20210717
  Serious: Yes (Life-Threatening, Hospitalization)
  Sender: FDA-Public Use
  Company Number: JP-AJANTA PHARMA USA INC.-2110510

PATIENT
  Age: 54 Year
  Sex: Female
  Weight: 77.5 kg

DRUGS (3)
  1. AMLODIPINE AND OLMESARTAN MEDOXOMIL (ANDA 207216) [Suspect]
     Active Substance: AMLODIPINE BESYLATE\OLMESARTAN MEDOXOMIL
     Indication: PRODUCT USED FOR UNKNOWN INDICATION
  2. ETIZOLAM [Suspect]
     Active Substance: ETIZOLAM
  3. BROTIZOLAM [Suspect]
     Active Substance: BROTIZOLAM

REACTIONS (6)
  - Metabolic acidosis [Recovered/Resolved]
  - Distributive shock [Recovered/Resolved]
  - Toxicity to various agents [Recovered/Resolved]
  - Mental status changes [Recovered/Resolved]
  - Suicide attempt [Recovered/Resolved]
  - Intentional overdose [Recovered/Resolved]
